FAERS Safety Report 7896522-1 (Version None)
Quarter: 2011Q4

REPORT INFORMATION
  Report Type: 
  Country: None (occurrence: None)
  Receive Date: 20111106
  Receipt Date: 20110909
  Transmission Date: 20120403
  Serious: No
  Sender: FDA-Public Use
  Company Number: US-AMGEN-USASP2011037948

PATIENT
  Age: 60 Year
  Sex: Female

DRUGS (1)
  1. ENBREL [Suspect]
     Indication: PSORIASIS
     Dosage: 50 MG, QWK
     Route: 058
     Dates: start: 20110317, end: 20110728

REACTIONS (11)
  - ARTHRALGIA [None]
  - HEADACHE [None]
  - PAIN IN EXTREMITY [None]
  - JOINT WARMTH [None]
  - BURNING SENSATION [None]
  - BUTTERFLY RASH [None]
  - EYE IRRITATION [None]
  - FEELING HOT [None]
  - VITAMIN B12 DECREASED [None]
  - RASH PRURITIC [None]
  - NECK PAIN [None]
